FAERS Safety Report 17669059 (Version 2)
Quarter: 2020Q2

REPORT INFORMATION
  Report Type: Spontaneous
  Country: DE (occurrence: DE)
  Receive Date: 20200415
  Receipt Date: 20200421
  Transmission Date: 20200713
  Serious: Yes (Other)
  Sender: FDA-Public Use
  Company Number: DE-DRREDDYS-GER/GER/20/0121810

PATIENT
  Sex: Female

DRUGS (2)
  1. SPIROBETA 50 [Suspect]
     Active Substance: SPIRONOLACTONE
     Indication: DIURETIC THERAPY
     Route: 048
  2. PREGABALIN BETA 50 MG HARTKAPSELN [Suspect]
     Active Substance: PREGABALIN
     Indication: PAIN IN EXTREMITY
     Route: 048

REACTIONS (8)
  - Alopecia [Unknown]
  - Hallucination [Recovered/Resolved]
  - Malaise [Unknown]
  - Dizziness [Unknown]
  - Arrhythmia [Unknown]
  - Pulmonary oedema [Unknown]
  - Hypokalaemia [Unknown]
  - Tremor [Unknown]
